FAERS Safety Report 4457388-5 (Version None)
Quarter: 2004Q3

REPORT INFORMATION
  Report Type: 
  Country: None (occurrence: None)
  Receive Date: 20040922
  Receipt Date: 20040908
  Transmission Date: 20050211
  Serious: Yes (Other)
  Sender: FDA-Public Use
  Company Number: USA040977782

PATIENT
  Sex: Male

DRUGS (1)
  1. HUMALOG [Suspect]

REACTIONS (8)
  - BLOOD GLUCOSE DECREASED [None]
  - BLOOD GLUCOSE INCREASED [None]
  - DRUG ADDICT [None]
  - HEPATIC CIRRHOSIS [None]
  - HEPATITIS C [None]
  - MYOCARDIAL INFARCTION [None]
  - RENAL DISORDER [None]
  - WEIGHT DECREASED [None]
